FAERS Safety Report 6817971-6 (Version None)
Quarter: 2010Q3

REPORT INFORMATION
  Report Type: 
  Country: None (occurrence: None)
  Receive Date: 20100706
  Receipt Date: 20100628
  Transmission Date: 20110219
  Serious: Yes (Hospitalization, Other)
  Sender: FDA-Public Use
  Company Number: US-AMGEN-QUU420862

PATIENT
  Sex: Male

DRUGS (12)
  1. NEULASTA [Suspect]
     Indication: CHEMOTHERAPY
     Route: 058
     Dates: start: 20100614
  2. CYCLOPHOSPHAMIDE [Concomitant]
  3. MESNA [Concomitant]
  4. DOXORUBICIN HCL [Concomitant]
  5. VINCRISTINE [Concomitant]
  6. ALLOPURINOL [Concomitant]
  7. DEXAMETHASONE [Concomitant]
  8. DALTEPARIN SODIUM [Concomitant]
  9. VICODIN [Concomitant]
  10. ALBUTEROL [Concomitant]
  11. ZANTAC [Concomitant]
  12. IPRATROPIUM [Concomitant]

REACTIONS (2)
  - DRUG INEFFECTIVE [None]
  - FEBRILE NEUTROPENIA [None]
